FAERS Safety Report 7919485-9 (Version None)
Quarter: 2011Q4

REPORT INFORMATION
  Report Type: 
  Country: None (occurrence: None)
  Receive Date: 20111117
  Receipt Date: 20111115
  Transmission Date: 20120403
  Serious: No
  Sender: FDA-Public Use
  Company Number: US-PFIZER INC-2011279981

PATIENT
  Sex: Female
  Weight: 68.027 kg

DRUGS (5)
  1. ACETYLSALICYLIC ACID/CHLORPHENAMINE MALEATE/PHENYLEPHRINE [Concomitant]
     Dosage: UNK
  2. ADVIL CONGESTION RELIEF [Suspect]
     Indication: NASAL CONGESTION
     Dosage: UNK, 1X/DAY
     Route: 048
     Dates: start: 20111112, end: 20111112
  3. IBUPROFEN [Concomitant]
     Dosage: UNK
  4. ADVIL CONGESTION RELIEF [Suspect]
     Indication: HEADACHE
  5. ADVIL CONGESTION RELIEF [Suspect]
     Indication: MALAISE

REACTIONS (1)
  - DRUG INEFFECTIVE [None]
